FAERS Safety Report 19751383 (Version 1)
Quarter: 2021Q3

REPORT INFORMATION
  Report Type: Other
  Country: CN (occurrence: CN)
  Receive Date: 20210826
  Receipt Date: 20210826
  Transmission Date: 20211014
  Serious: Yes (Other)
  Sender: FDA-Public Use
  Company Number: CN-ROCHE-2894383

PATIENT
  Sex: Male

DRUGS (1)
  1. TECENTRIQ [Suspect]
     Active Substance: ATEZOLIZUMAB
     Indication: SMALL CELL LUNG CANCER
     Route: 041

REACTIONS (5)
  - Loss of consciousness [Unknown]
  - Seizure [Unknown]
  - Foaming at mouth [Unknown]
  - Tachypnoea [Unknown]
  - Chest discomfort [Unknown]
